FAERS Safety Report 12093880 (Version 1)
Quarter: 2016Q1

REPORT INFORMATION
  Report Type: Spontaneous
  Country: GB (occurrence: GB)
  Receive Date: 20160219
  Receipt Date: 20160219
  Transmission Date: 20160526
  Serious: Yes (Other)
  Sender: FDA-Public Use
  Company Number: GB-TEVA-635793ACC

PATIENT
  Sex: Female

DRUGS (1)
  1. MYFENAX [Suspect]
     Active Substance: MYCOPHENOLATE MOFETIL
     Dosage: CUTS IN HALF
     Route: 048

REACTIONS (2)
  - Feeling abnormal [Unknown]
  - Choking [Unknown]
